FAERS Safety Report 5756344-4 (Version None)
Quarter: 2008Q2

REPORT INFORMATION
  Report Type: 
  Country: None (occurrence: None)
  Receive Date: 20080528
  Receipt Date: 20080528
  Transmission Date: 20081010
  Serious: No
  Sender: FDA-Public Use
  Company Number: None

PATIENT
  Age: 31 Year
  Sex: Female
  Weight: 86.1834 kg

DRUGS (1)
  1. CHANTIX [Suspect]
     Indication: SMOKING CESSATION THERAPY
     Dates: start: 20080111, end: 20080314

REACTIONS (4)
  - DISSOCIATION [None]
  - EMOTIONAL DISORDER [None]
  - FEELING ABNORMAL [None]
  - NERVOUS SYSTEM DISORDER [None]
